FAERS Safety Report 5150466-7 (Version None)
Quarter: 2006Q4

REPORT INFORMATION
  Report Type: 
  Country: None (occurrence: None)
  Receive Date: 20061114
  Receipt Date: 20061030
  Transmission Date: 20070319
  Serious: No
  Sender: FDA-Public Use
  Company Number: 2006GB01955

PATIENT
  Age: 61 Year
  Sex: Female
  Weight: 95 kg

DRUGS (5)
  1. QUETIAPINE FUMARATE [Suspect]
     Indication: BIPOLAR DISORDER
     Route: 048
     Dates: start: 20051208
  2. QUETIAPINE FUMARATE [Suspect]
     Route: 048
     Dates: start: 20060203
  3. DEPAKOTE [Suspect]
     Indication: BIPOLAR DISORDER
     Route: 048
     Dates: start: 20051216, end: 20060809
  4. DEPAKOTE [Suspect]
     Route: 048
     Dates: start: 20060810
  5. LORAZEPAM [Concomitant]
     Indication: AGITATION
     Route: 048
     Dates: start: 20060403

REACTIONS (1)
  - NEUTROPENIA [None]
